FAERS Safety Report 21943527 (Version 1)
Quarter: 2023Q1

REPORT INFORMATION
  Report Type: Report from Study
  Country: US (occurrence: US)
  Receive Date: 20230202
  Receipt Date: 20230202
  Transmission Date: 20230417
  Serious: Yes (Other)
  Sender: FDA-Public Use
  Company Number: US-TAKEDA-2017BLT004321

PATIENT
  Age: 58 Year
  Sex: Female

DRUGS (1)
  1. HUMAN IMMUNOGLOBULIN G\HYALURONIDASE RECOMBINANT HUMAN [Suspect]
     Active Substance: HUMAN IMMUNOGLOBULIN G\HYALURONIDASE RECOMBINANT HUMAN
     Indication: Selective IgG subclass deficiency
     Dosage: UNK
     Route: 058

REACTIONS (6)
  - Spinal fusion surgery [Unknown]
  - Ankle fracture [Unknown]
  - Fall [Unknown]
  - Tendon injury [Unknown]
  - Ligament injury [Unknown]
  - Asthma [Unknown]

NARRATIVE: CASE EVENT DATE: 20220401
